FAERS Safety Report 21096305 (Version 1)
Quarter: 2022Q3

REPORT INFORMATION
  Report Type: Spontaneous
  Country: US (occurrence: None)
  Receive Date: 20220718
  Receipt Date: 20220718
  Transmission Date: 20221027
  Serious: Yes (Disabling)
  Sender: FDA-Public Use
  Company Number: None

PATIENT
  Age: 69 Year
  Sex: Female
  Weight: 63 kg

DRUGS (1)
  1. PAXLOVID [Suspect]
     Active Substance: NIRMATRELVIR\RITONAVIR
     Indication: COVID-19 treatment
     Dates: start: 20220716, end: 20220716

REACTIONS (5)
  - Nausea [None]
  - Vomiting [None]
  - Diarrhoea [None]
  - Hyperhidrosis [None]
  - Asthenia [None]

NARRATIVE: CASE EVENT DATE: 20220716
